FAERS Safety Report 24437975 (Version 2)
Quarter: 2024Q4

REPORT INFORMATION
  Report Type: Spontaneous
  Country: US (occurrence: US)
  Receive Date: 20241015
  Receipt Date: 20241115
  Transmission Date: 20250114
  Serious: Yes (Other)
  Sender: TEVA
  Company Number: US-TEVA-VS-3253222

PATIENT
  Age: 22 Year
  Sex: Female

DRUGS (2)
  1. NORETHINDRONE [Suspect]
     Active Substance: NORETHINDRONE
     Indication: Uterine haemorrhage
     Route: 048
  2. TESTOSTERONE [Suspect]
     Active Substance: TESTOSTERONE
     Indication: Transgender hormonal therapy
     Dosage: TESTOSTERONE CIPIONATE
     Route: 030

REACTIONS (3)
  - Hepatic adenoma [Recovering/Resolving]
  - Haemorrhage [Unknown]
  - Necrosis [Unknown]
